FAERS Safety Report 19441370 (Version 2)
Quarter: 2025Q2

REPORT INFORMATION
  Report Type: Spontaneous
  Country: US (occurrence: US)
  Receive Date: 20210621
  Receipt Date: 20250626
  Transmission Date: 20250717
  Serious: Yes (Other)
  Sender: AUROBINDO
  Company Number: US-MLMSERVICE-20210607-2934712-1

PATIENT
  Age: 69 Year
  Sex: Male

DRUGS (30)
  1. QUETIAPINE [Suspect]
     Active Substance: QUETIAPINE
     Indication: Bipolar disorder
     Route: 065
  2. QUETIAPINE [Suspect]
     Active Substance: QUETIAPINE
     Indication: Sleep disorder
  3. OLANZAPINE [Suspect]
     Active Substance: OLANZAPINE
     Indication: Bipolar disorder
     Route: 065
  4. OLANZAPINE [Suspect]
     Active Substance: OLANZAPINE
     Indication: Sleep disorder
  5. GABAPENTIN [Suspect]
     Active Substance: GABAPENTIN
     Indication: Bipolar disorder
     Dosage: 3200 MILLIGRAM, ONCE A DAY
     Route: 065
  6. GABAPENTIN [Suspect]
     Active Substance: GABAPENTIN
     Indication: Sleep disorder
     Dosage: 800 MILLIGRAM, ONCE A DAY
     Route: 065
     Dates: start: 201611, end: 201808
  7. GABAPENTIN [Suspect]
     Active Substance: GABAPENTIN
     Dosage: 1600 MILLIGRAM, ONCE A DAY
     Route: 065
     Dates: start: 201611, end: 201808
  8. PRAMIPEXOLE [Concomitant]
     Active Substance: PRAMIPEXOLE
     Indication: Bipolar disorder
     Dosage: 375 MICROGRAM, ONCE A DAY
     Route: 065
     Dates: start: 201611, end: 201707
  9. LAMOTRIGINE [Concomitant]
     Active Substance: LAMOTRIGINE
     Indication: Bipolar disorder
     Dosage: 100 MICROGRAM, ONCE A DAY
     Route: 065
     Dates: start: 201803, end: 202009
  10. LAMOTRIGINE [Concomitant]
     Active Substance: LAMOTRIGINE
     Dosage: 200 MICROGRAM, ONCE A DAY
     Route: 065
     Dates: start: 201611, end: 201802
  11. FLUOXETINE [Concomitant]
     Active Substance: FLUOXETINE HYDROCHLORIDE
     Indication: Product used for unknown indication
     Route: 065
  12. FLUOXETINE [Concomitant]
     Active Substance: FLUOXETINE HYDROCHLORIDE
     Route: 065
     Dates: start: 201711
  13. TRAZODONE [Concomitant]
     Active Substance: TRAZODONE HYDROCHLORIDE
     Indication: Product used for unknown indication
     Route: 065
  14. TEMAZEPAM [Concomitant]
     Active Substance: TEMAZEPAM
     Indication: Insomnia
     Route: 065
  15. DIVALPROEX SODIUM [Concomitant]
     Active Substance: DIVALPROEX SODIUM
     Indication: Affective disorder
     Route: 065
     Dates: start: 201701, end: 201802
  16. DIVALPROEX SODIUM [Concomitant]
     Active Substance: DIVALPROEX SODIUM
     Route: 065
     Dates: start: 201803, end: 202009
  17. ROPINIROLE [Concomitant]
     Active Substance: ROPINIROLE
     Indication: Affective disorder
     Route: 065
  18. ROPINIROLE [Concomitant]
     Active Substance: ROPINIROLE
     Route: 065
     Dates: start: 201703, end: 201803
  19. ROPINIROLE [Concomitant]
     Active Substance: ROPINIROLE
     Dosage: 4 MILLIGRAM, TWO TIMES A DAY
     Route: 065
     Dates: start: 201806, end: 201903
  20. ROPINIROLE [Concomitant]
     Active Substance: ROPINIROLE
     Dosage: 4 MILLIGRAM, 3 TIMES A DAY
     Route: 065
     Dates: start: 201904, end: 201907
  21. ROPINIROLE [Concomitant]
     Active Substance: ROPINIROLE
     Dosage: 6 MILLIGRAM, 3 TIMES A DAY
     Route: 065
     Dates: start: 201908, end: 201912
  22. ROPINIROLE [Concomitant]
     Active Substance: ROPINIROLE
     Dosage: 8 MILLIGRAM, 3 TIMES A DAY
     Route: 065
     Dates: start: 202001, end: 202011
  23. CARBIDOPA LEVODOPA [Concomitant]
     Active Substance: CARBIDOPA\LEVODOPA
     Indication: Product used for unknown indication
     Dosage: 1 DOSAGE FORM, TWO TIMES A DAY
     Route: 065
     Dates: start: 201803, end: 201805
  24. CARBIDOPA LEVODOPA [Concomitant]
     Active Substance: CARBIDOPA\LEVODOPA
     Dosage: 1 DOSAGE FORM, FOUR TIMES/DAY
     Route: 065
     Dates: start: 201806, end: 201903
  25. CARBIDOPA LEVODOPA [Concomitant]
     Active Substance: CARBIDOPA\LEVODOPA
     Dosage: 2 DOSAGE FORM, 3 TIMES A DAY
     Route: 065
     Dates: start: 201904, end: 202008
  26. PREGABALIN [Concomitant]
     Active Substance: PREGABALIN
     Indication: Product used for unknown indication
     Route: 065
  27. PREGABALIN [Concomitant]
     Active Substance: PREGABALIN
     Dosage: 300 MILLIGRAM, TWO TIMES A DAY
     Route: 065
     Dates: start: 201808, end: 201901
  28. PREGABALIN [Concomitant]
     Active Substance: PREGABALIN
     Dosage: 300 MILLIGRAM, TWO TIMES A DAY
     Route: 065
     Dates: start: 202007, end: 202011
  29. FERROUS SULFATE [Concomitant]
     Active Substance: FERROUS SULFATE
     Indication: Product used for unknown indication
     Route: 065
     Dates: start: 201808, end: 202009
  30. CODEINE [Concomitant]
     Active Substance: CODEINE
     Indication: Product used for unknown indication
     Route: 065
     Dates: start: 201703, end: 201802

REACTIONS (4)
  - Restless legs syndrome [Recovering/Resolving]
  - Condition aggravated [Recovering/Resolving]
  - Intentional product misuse [Recovering/Resolving]
  - Self-medication [Recovering/Resolving]

NARRATIVE: CASE EVENT DATE: 20170101
